FAERS Safety Report 4297733-7 (Version None)
Quarter: 2004Q1

REPORT INFORMATION
  Report Type: 
  Country: None (occurrence: None)
  Receive Date: 20040126
  Receipt Date: 20031105
  Transmission Date: 20041129
  Serious: No
  Sender: FDA-Public Use
  Company Number: USA031151830

PATIENT
  Age: 59 Year
  Sex: Female
  Weight: 62 kg

DRUGS (2)
  1. STRATTERA [Suspect]
     Indication: PERVASIVE DEVELOPMENTAL DISORDER
     Dosage: 80 MG/DAY
     Dates: start: 20031001, end: 20031030
  2. LEXAPRO [Concomitant]

REACTIONS (6)
  - ABNORMAL DREAMS [None]
  - AGITATION [None]
  - ANOREXIA [None]
  - IRRITABILITY [None]
  - NIGHTMARE [None]
  - WEIGHT DECREASED [None]
